FAERS Safety Report 19968126 (Version 1)
Quarter: 2021Q4

REPORT INFORMATION
  Report Type: Report from Study
  Country: US (occurrence: US)
  Receive Date: 20211019
  Receipt Date: 20211019
  Transmission Date: 20220303
  Serious: Yes (Other)
  Sender: FDA-Public Use
  Company Number: US-FARMAPROD-202110-1822

PATIENT
  Age: 59 Year
  Sex: Male

DRUGS (9)
  1. OXERVATE [Suspect]
     Active Substance: CENEGERMIN-BKBJ
     Indication: Neurotrophic keratopathy
     Route: 047
     Dates: start: 20210716, end: 20210909
  2. JARDIANCE [Concomitant]
     Active Substance: EMPAGLIFLOZIN
     Indication: Hyperglycaemia
     Route: 048
     Dates: start: 20210716
  3. LOSARTAN [Concomitant]
     Active Substance: LOSARTAN
     Indication: Hypertension
     Route: 048
     Dates: start: 2019
  4. GABAPENTIN [Concomitant]
     Active Substance: GABAPENTIN
     Indication: Post herpetic neuralgia
     Route: 048
     Dates: start: 202101
  5. TYLENOL [Concomitant]
     Active Substance: ACETAMINOPHEN
     Indication: Post herpetic neuralgia
     Route: 048
     Dates: start: 202101
  6. METOPROLOL [Concomitant]
     Active Substance: METOPROLOL
     Indication: Hypertension
     Route: 048
     Dates: start: 202002
  7. METFORMIN [Concomitant]
     Active Substance: METFORMIN HYDROCHLORIDE
     Indication: Type 2 diabetes mellitus
     Route: 048
     Dates: start: 202012
  8. INSULIN HUMAN [Concomitant]
     Active Substance: INSULIN HUMAN
     Indication: Type 2 diabetes mellitus
     Route: 058
  9. PRED FORTE [Concomitant]
     Active Substance: PREDNISOLONE ACETATE
     Indication: Ophthalmic herpes zoster
     Route: 047
     Dates: start: 20210917

REACTIONS (1)
  - Iridocyclitis [Recovered/Resolved]

NARRATIVE: CASE EVENT DATE: 20211003
